FAERS Safety Report 5103993-2 (Version None)
Quarter: 2006Q3

REPORT INFORMATION
  Report Type: 
  Country: None (occurrence: None)
  Receive Date: 20060911
  Receipt Date: 20060830
  Transmission Date: 20061208
  Serious: Yes (Hospitalization)
  Sender: FDA-Public Use
  Company Number: 2006102813

PATIENT
  Age: 83 Year
  Sex: Female
  Weight: 103 kg

DRUGS (4)
  1. FLUCONAZOLE [Suspect]
     Indication: CANDIDIASIS
     Dosage: 100 MG (100 MG, DAILY), ORAL
     Route: 048
     Dates: start: 20060715
  2. CIPROFLOXACIN [Suspect]
     Indication: DRUG USE FOR UNKNOWN INDICATION
  3. TENORDATE (ATENOLOL, NIFEDIPINE) [Concomitant]
  4. ALLOPURINOL [Concomitant]

REACTIONS (9)
  - ALANINE AMINOTRANSFERASE INCREASED [None]
  - ASPARTATE AMINOTRANSFERASE INCREASED [None]
  - BILIARY TRACT DISORDER [None]
  - BILIRUBIN CONJUGATED INCREASED [None]
  - BLOOD AMYLASE DECREASED [None]
  - BLOOD LACTATE DEHYDROGENASE INCREASED [None]
  - DRUG INTERACTION [None]
  - JAUNDICE [None]
  - ULTRASOUND ABDOMEN ABNORMAL [None]
